FAERS Safety Report 4395073-9 (Version None)
Quarter: 2004Q3

REPORT INFORMATION
  Report Type: 
  Country: None (occurrence: None)
  Receive Date: 20040706
  Receipt Date: 20040625
  Transmission Date: 20050211
  Serious: Yes (Hospitalization)
  Sender: FDA-Public Use
  Company Number: 2004-04-1035

PATIENT
  Age: 84 Year
  Sex: Female
  Weight: 61.2356 kg

DRUGS (3)
  1. K-DUR 10 [Suspect]
     Dosage: 10MEQ BID ORAL
     Route: 048
     Dates: start: 19800101
  2. POTASSIUM CHLORIDE [Suspect]
     Dosage: ORAL
     Route: 048
  3. LASIX [Concomitant]

REACTIONS (9)
  - ASTHENIA [None]
  - CHOKING [None]
  - COUGH [None]
  - DYSPHAGIA [None]
  - EPISTAXIS [None]
  - FEAR [None]
  - PHARMACEUTICAL PRODUCT COMPLAINT [None]
  - SENSATION OF HEAVINESS [None]
  - TREATMENT NONCOMPLIANCE [None]
